FAERS Safety Report 14918871 (Version 1)
Quarter: 2018Q2

REPORT INFORMATION
  Report Type: Spontaneous
  Country: SE (occurrence: SE)
  Receive Date: 20180521
  Receipt Date: 20180521
  Transmission Date: 20180711
  Serious: Yes (Other)
  Sender: FDA-Public Use
  Company Number: SE-ALLERGAN-1826718US

PATIENT
  Age: 27 Year
  Sex: Male

DRUGS (2)
  1. LITHIONIT [Concomitant]
     Active Substance: LITHIUM SULFATE
     Dates: start: 201802
  2. ESCITALOPRAM OXALATE - BP [Suspect]
     Active Substance: ESCITALOPRAM OXALATE
     Indication: DEPRESSION
     Dosage: 5 MG, QD
     Route: 048
     Dates: start: 20180411, end: 20180419

REACTIONS (2)
  - Erectile dysfunction [Recovered/Resolved]
  - Anorgasmia [Recovered/Resolved]

NARRATIVE: CASE EVENT DATE: 20180412
